FAERS Safety Report 8319555-X (Version None)
Quarter: 2012Q2

REPORT INFORMATION
  Report Type: 
  Country: None (occurrence: None)
  Receive Date: 20120427
  Receipt Date: 20120423
  Transmission Date: 20120825
  Serious: Yes (Death)
  Sender: FDA-Public Use
  Company Number: PHHY2012US035342

PATIENT
  Age: 56 Year
  Sex: Male

DRUGS (5)
  1. BENZTROPINE MESYLATE [Suspect]
     Dosage: UNK UKN, UNK
  2. BUPROPION HCL [Suspect]
     Dosage: UNK UKN, UNK
  3. EZETIMIBE [Suspect]
     Dosage: UNK UKN, UNK
  4. CLOZAPINE [Suspect]
     Dosage: UNK UKN, UNK
  5. SERTRALINE HYDROCHLORIDE [Suspect]
     Dosage: UNK UKN, UNK

REACTIONS (1)
  - COMPLETED SUICIDE [None]
